FAERS Safety Report 9257102 (Version 1)
Quarter: 2013Q2

REPORT INFORMATION
  Report Type: Spontaneous
  Country: US (occurrence: None)
  Receive Date: 20130424
  Receipt Date: 20130503
  Transmission Date: 20140414
  Serious: Yes (Death, Other)
  Sender: FDA-Public Use
  Company Number: ADR-2013-00690

PATIENT
  Sex: Female

DRUGS (2)
  1. BACLOFEN - 400 MCG/ML [Suspect]
     Indication: PAIN
  2. MORPHINE AND CLONIDINE (INTRATHECAL) [Concomitant]

REACTIONS (1)
  - Hepatic cancer [None]
